FAERS Safety Report 26107529 (Version 1)
Quarter: 2025Q4

REPORT INFORMATION
  Report Type: Spontaneous
  Country: CN (occurrence: CN)
  Receive Date: 20251201
  Receipt Date: 20251201
  Transmission Date: 20260118
  Serious: Yes (Hospitalization, Other)
  Sender: PFIZER
  Company Number: CN-PFIZER INC-PV202500139100

PATIENT
  Age: 39 Year
  Sex: Male

DRUGS (2)
  1. XYNTHA [Suspect]
     Active Substance: MOROCTOCOG ALFA
     Indication: Factor VIII deficiency
     Dosage: 1000 IU, 2X/WEEK AT ORDINARY TIMES
  2. XYNTHA [Suspect]
     Active Substance: MOROCTOCOG ALFA
     Dosage: 2000 IU ADDED FOR TREATMENT OF BLEEDING EPISODES

REACTIONS (2)
  - Joint range of motion decreased [Not Recovered/Not Resolved]
  - Epistaxis [Recovering/Resolving]

NARRATIVE: CASE EVENT DATE: 20250101
